FAERS Safety Report 20416650 (Version 4)
Quarter: 2025Q2

REPORT INFORMATION
  Report Type: Spontaneous
  Country: US (occurrence: US)
  Receive Date: 20220202
  Receipt Date: 20250401
  Transmission Date: 20250717
  Serious: No
  Sender: GLAXOSMITHKLINE
  Company Number: US-GLAXOSMITHKLINE-US2022AMR015035

PATIENT
  Sex: Female

DRUGS (6)
  1. BENLYSTA [Suspect]
     Active Substance: BELIMUMAB
     Indication: Systemic lupus erythematosus
     Dosage: 200 MG/ML, WE 1 PEN ONCE WEEKLY
     Route: 058
  2. BENLYSTA [Suspect]
     Active Substance: BELIMUMAB
     Indication: Systemic lupus erythematosus
     Dosage: 200 MG/ML, WE 1 PEN ONCE WEEKLY
     Route: 058
  3. BENLYSTA [Suspect]
     Active Substance: BELIMUMAB
  4. BENLYSTA [Suspect]
     Active Substance: BELIMUMAB
     Indication: Systemic lupus erythematosus
     Dosage: 200 MG, WE
     Route: 058
  5. BENLYSTA [Suspect]
     Active Substance: BELIMUMAB
  6. BENLYSTA [Suspect]
     Active Substance: BELIMUMAB

REACTIONS (3)
  - Depressed mood [Unknown]
  - Crying [Unknown]
  - Product dose omission issue [Unknown]
